FAERS Safety Report 6296143-0 (Version None)
Quarter: 2009Q3

REPORT INFORMATION
  Report Type: 
  Country: None (occurrence: None)
  Receive Date: 20090804
  Receipt Date: 20090728
  Transmission Date: 20100115
  Serious: Yes (Congenital Anomaly)
  Sender: FDA-Public Use
  Company Number: US-ASTRAZENECA-2009SE06323

PATIENT
  Age: 0 Week

DRUGS (3)
  1. ENTOCORT EC [Suspect]
     Route: 064
  2. IMURAN [Suspect]
     Indication: CROHN'S DISEASE
     Route: 064
     Dates: start: 20060215, end: 20080101
  3. PENTASA [Concomitant]
     Route: 064

REACTIONS (1)
  - HEART DISEASE CONGENITAL [None]
